FAERS Safety Report 9329286 (Version 1)
Quarter: 2013Q2

REPORT INFORMATION
  Report Type: Spontaneous
  Country: US (occurrence: None)
  Receive Date: 20130531
  Receipt Date: 20130531
  Transmission Date: 20140414
  Serious: Yes (Life-Threatening, Hospitalization, Other)
  Sender: FDA-Public Use
  Company Number: 2013P1006262

PATIENT
  Age: 29 Year
  Sex: Female

DRUGS (4)
  1. BUPROPION [Suspect]
     Route: 048
  2. AMPHETAMINE/DEXTROAMPHETAMINE [Concomitant]
  3. GABAPENTIN [Concomitant]
  4. UNSPECIFIED LAXATIVE [Concomitant]

REACTIONS (10)
  - Dizziness [None]
  - Grand mal convulsion [None]
  - Respiratory rate increased [None]
  - Unresponsive to stimuli [None]
  - Metabolic acidosis [None]
  - Overdose [None]
  - Brain death [None]
  - Electrocardiogram QT prolonged [None]
  - Cardiogenic shock [None]
  - Sinus tachycardia [None]
